FAERS Safety Report 10428418 (Version 1)
Quarter: 2014Q3

REPORT INFORMATION
  Report Type: Spontaneous
  Country: US (occurrence: None)
  Receive Date: 20140829
  Receipt Date: 20140829
  Transmission Date: 20150326
  Serious: Yes (Hospitalization)
  Sender: FDA-Public Use
  Company Number: 2014AP004118

PATIENT
  Age: 59 Year
  Sex: Female

DRUGS (16)
  1. OMEPRAZOLE. [Concomitant]
     Active Substance: OMEPRAZOLE
  2. SENNOSIDES [Concomitant]
     Active Substance: SENNOSIDES
  3. ENERCEL PLUS IM [Suspect]
     Active Substance: HOMEOPATHICS
     Indication: AMYOTROPHIC LATERAL SCLEROSIS
     Dosage: 0.25-0.5ML DAILY TO EACH ACUPUNCTURE POINT ON MONDAY TO FRIDAY EACH WEEK, INTRAMUSCULAR?
     Route: 030
  4. ENERCEL MAX [Suspect]
     Active Substance: HOMEOPATHICS
     Indication: AMYOTROPHIC LATERAL SCLEROSIS
     Dosage: 20 DROPS TWICE DAILY, SUBLINGUAL?
     Route: 060
  5. LASIX [Suspect]
     Active Substance: FUROSEMIDE
     Indication: PRODUCT USED FOR UNKNOWN INDICATION
  6. HYDROCHLOROTHIAZIDE (HYDROCHLOROTHIAZIDE) TABLET [Suspect]
     Active Substance: HYDROCHLOROTHIAZIDE
     Indication: PRODUCT USED FOR UNKNOWN INDICATION
  7. SERTRALINE [Concomitant]
     Active Substance: SERTRALINE HYDROCHLORIDE
  8. RILUTEK [Suspect]
     Active Substance: RILUZOLE
     Indication: PRODUCT USED FOR UNKNOWN INDICATION
  9. LORAZEPAM. [Concomitant]
     Active Substance: LORAZEPAM
  10. ATENOLOL. [Concomitant]
     Active Substance: ATENOLOL
  11. COLACE [Concomitant]
     Active Substance: DOCUSATE SODIUM
  12. ESTRADIOL. [Concomitant]
     Active Substance: ESTRADIOL
  13. MAGNESIUM SULFATE [Concomitant]
     Active Substance: MAGNESIUM SULFATE
  14. POTASSIUM CHLORIDE. [Concomitant]
     Active Substance: POTASSIUM CHLORIDE
  15. GABAPENTIN. [Concomitant]
     Active Substance: GABAPENTIN
  16. OXYCODONE [Concomitant]
     Active Substance: OXYCODONE

REACTIONS (6)
  - Dizziness [None]
  - Myalgia [None]
  - Fatigue [None]
  - Pyrexia [None]
  - Blood potassium decreased [None]
  - Oedema [None]
